FAERS Safety Report 7108006-9 (Version None)
Quarter: 2010Q4

REPORT INFORMATION
  Report Type: 
  Country: None (occurrence: None)
  Receive Date: 20101117
  Receipt Date: 20101103
  Transmission Date: 20110411
  Serious: No
  Sender: FDA-Public Use
  Company Number: US-B.I. PHARMACEUTICALS,INC./RIDGEFIELD-2010-BP-10802BP

PATIENT
  Age: 76 Year
  Sex: Male

DRUGS (5)
  1. CATAPRES-TTS-1 [Suspect]
     Indication: HYPERTENSION
     Dosage: 0.1 MG
     Dates: start: 20070101, end: 20070101
  2. CATAPRES-TTS-1 [Suspect]
     Dosage: 0.2 MG
     Dates: start: 20080101, end: 20080101
  3. CATAPRES-TTS-1 [Suspect]
     Dosage: 0.1 MG
     Dates: start: 20090101
  4. ATENOLOL [Concomitant]
     Dosage: 100 MG
  5. TRIAMTERENE AND HYDROCHLOROTHIAZIDE [Concomitant]

REACTIONS (6)
  - ARTHRALGIA [None]
  - BLOOD PRESSURE FLUCTUATION [None]
  - BLOOD PRESSURE INCREASED [None]
  - FEELING ABNORMAL [None]
  - PRURITUS [None]
  - SLEEP DISORDER [None]
